FAERS Safety Report 8237007-2 (Version None)
Quarter: 2012Q1

REPORT INFORMATION
  Report Type: 
  Country: None (occurrence: None)
  Receive Date: 20120327
  Receipt Date: 20120322
  Transmission Date: 20120608
  Serious: Yes (Death, Hospitalization)
  Sender: FDA-Public Use
  Company Number: PHHY2012MX025762

PATIENT
  Sex: Male

DRUGS (2)
  1. EXFORGE [Suspect]
     Indication: HYPERTENSION
     Dosage: 1 DF (160MG VALS/10MG AMLO) DAILY
     Dates: start: 20100101, end: 20120220
  2. MAVIGLIN [Concomitant]
     Indication: DIABETES MELLITUS
     Dosage: 1 DF, DAILY
     Dates: end: 20120220

REACTIONS (8)
  - BLOOD PRESSURE DECREASED [None]
  - ACID BASE BALANCE ABNORMAL [None]
  - BLOOD GLUCOSE INCREASED [None]
  - BLOOD UREA INCREASED [None]
  - BLOOD CREATININE INCREASED [None]
  - ELECTROLYTE IMBALANCE [None]
  - HAEMODIALYSIS COMPLICATION [None]
  - BRONCHOPNEUMONIA [None]
